FAERS Safety Report 4454549-6 (Version None)
Quarter: 2004Q3

REPORT INFORMATION
  Report Type: 
  Country: None (occurrence: None)
  Receive Date: 20040826
  Receipt Date: 20040514
  Transmission Date: 20050211
  Serious: No
  Sender: FDA-Public Use
  Company Number: WAES 0405USA01115

PATIENT
  Age: 73 Year
  Sex: Male

DRUGS (12)
  1. ZETIA [Suspect]
     Indication: HYPERCHOLESTEROLAEMIA
     Dosage: 10 MG/DAILY/PO
     Route: 048
     Dates: start: 20030416, end: 20040514
  2. BEXTRA [Concomitant]
  3. PEPCID [Concomitant]
  4. ASCORBIC ACID [Concomitant]
  5. ASPIRIN [Concomitant]
  6. CALCIUM (CHOLECALCIFEROL) [Concomitant]
  7. CYANOCOBALAMIN [Concomitant]
  8. FOLIC ACID [Concomitant]
  9. NAPROXEN [Concomitant]
  10. PYRIDOXINE [Concomitant]
  11. SAW PALMETTO [Concomitant]
  12. VITAMIN E [Concomitant]

REACTIONS (2)
  - BLOOD CREATINE PHOSPHOKINASE INCREASED [None]
  - FATIGUE [None]
